FAERS Safety Report 8577125-2 (Version None)
Quarter: 2012Q2

REPORT INFORMATION
  Report Type: 
  Country: None (occurrence: None)
  Receive Date: 20120423
  Receipt Date: 20091214
  Transmission Date: 20120825
  Serious: Yes (Other)
  Sender: FDA-Public Use
  Company Number: PHEH2008US11616

PATIENT
  Sex: Male
  Weight: 81.6 kg

DRUGS (1)
  1. EXJADE [Suspect]
     Indication: SICKLE CELL ANAEMIA
     Dosage: 750 MG, QD, ORAL
     Route: 048
     Dates: start: 20060412

REACTIONS (3)
  - RENAL FAILURE [None]
  - BLOOD CREATININE INCREASED [None]
  - DIALYSIS [None]
